FAERS Safety Report 6327861-3 (Version None)
Quarter: 2009Q3

REPORT INFORMATION
  Report Type: 
  Country: None (occurrence: None)
  Receive Date: 20090824
  Receipt Date: 20090806
  Transmission Date: 20100115
  Serious: Yes (Hospitalization)
  Sender: FDA-Public Use
  Company Number: 2009BI018656

PATIENT
  Age: 64 Year
  Sex: Male

DRUGS (19)
  1. ZEVALIN [Suspect]
     Indication: STEM CELL TRANSPLANT
     Dosage: 30 MCI; 1X; IV
     Route: 042
     Dates: start: 20090515, end: 20090515
  2. RITUXIMAB [Concomitant]
  3. POTASSIUM CHLORIDE [Concomitant]
  4. AMARYL [Concomitant]
  5. PANTECTA [Concomitant]
  6. POLARAMINE [Concomitant]
  7. ACETAMINOPHEN [Concomitant]
  8. ZYLORIC [Concomitant]
  9. ZOFRAN [Concomitant]
  10. MYCOSTATIN [Concomitant]
  11. TAVANIC [Concomitant]
  12. DIFLUCAN [Concomitant]
  13. URBASON [Concomitant]
  14. NEULASTA [Concomitant]
  15. VANCOMYCIN [Concomitant]
  16. CEFEPIME [Concomitant]
  17. PRIMPERAN [Concomitant]
  18. DAPTOMYCIN [Concomitant]
  19. CYTARABINE [Concomitant]

REACTIONS (15)
  - ALANINE AMINOTRANSFERASE INCREASED [None]
  - ARTERIOSCLEROSIS [None]
  - ASPARTATE AMINOTRANSFERASE INCREASED [None]
  - ASPERGILLOSIS [None]
  - BLOOD ALKALINE PHOSPHATASE INCREASED [None]
  - BLOOD BILIRUBIN INCREASED [None]
  - BLOOD LACTATE DEHYDROGENASE INCREASED [None]
  - CHOLELITHIASIS [None]
  - GAMMA-GLUTAMYLTRANSFERASE INCREASED [None]
  - HEPATIC FUNCTION ABNORMAL [None]
  - HEPATOMEGALY [None]
  - PYREXIA [None]
  - RETROPERITONEAL LYMPHADENOPATHY [None]
  - SEPTIC EMBOLUS [None]
  - STEM CELL TRANSPLANT [None]
